FAERS Safety Report 6318827-8 (Version None)
Quarter: 2009Q3

REPORT INFORMATION
  Report Type: 
  Country: None (occurrence: None)
  Receive Date: 20090821
  Receipt Date: 20090807
  Transmission Date: 20100115
  Serious: Yes (Hospitalization)
  Sender: FDA-Public Use
  Company Number: ES-GENENTECH-288793

PATIENT
  Sex: Female

DRUGS (10)
  1. RITUXIMAB [Suspect]
     Indication: LYMPHOCYTIC LEUKAEMIA
     Dosage: 780 MG, UNK
     Route: 042
     Dates: start: 20081210
  2. CYCLOPHOSPHAMIDE [Suspect]
     Indication: LYMPHOCYTIC LEUKAEMIA
     Dosage: 195 MG, UNK
     Route: 042
     Dates: start: 20081210
  3. FLUDARABINE PHOSPHATE [Suspect]
     Indication: LYMPHOCYTIC LEUKAEMIA
     Dosage: 19.5 MG, UNK
     Route: 042
     Dates: start: 20081210
  4. BISOPROLOL FUMARATE [Concomitant]
     Indication: DRUG USE FOR UNKNOWN INDICATION
     Dosage: UNK
     Dates: start: 20060505
  5. SULFATE FERREUX [Concomitant]
     Indication: DRUG USE FOR UNKNOWN INDICATION
     Dosage: UNK
     Dates: start: 20090608
  6. ATORVASTATIN [Concomitant]
     Indication: DRUG USE FOR UNKNOWN INDICATION
     Dosage: UNK
     Dates: start: 20081213
  7. OMEPRAZOLE [Concomitant]
     Indication: DRUG USE FOR UNKNOWN INDICATION
     Dosage: UNK
     Dates: start: 20081203
  8. ALDACTONE [Concomitant]
     Indication: DRUG USE FOR UNKNOWN INDICATION
     Dosage: UNK
     Dates: start: 20081203
  9. TORASEMIDE [Concomitant]
     Indication: DRUG USE FOR UNKNOWN INDICATION
     Dosage: UNK
     Dates: start: 20081203
  10. ACENOCOUMAROL [Concomitant]
     Indication: DRUG USE FOR UNKNOWN INDICATION
     Dosage: UNK
     Dates: start: 20090506

REACTIONS (1)
  - FEBRILE NEUTROPENIA [None]
